FAERS Safety Report 7398793-7 (Version None)
Quarter: 2011Q2

REPORT INFORMATION
  Report Type: 
  Country: None (occurrence: None)
  Receive Date: 20110404
  Receipt Date: 20110404
  Transmission Date: 20111010
  Serious: Yes (Hospitalization)
  Sender: FDA-Public Use
  Company Number: None

PATIENT
  Sex: Female
  Weight: 77.2 kg

DRUGS (7)
  1. ETOPOSIDE [Suspect]
     Dosage: 480 MG
  2. PREDNISONE [Suspect]
     Dosage: 1200 MG
  3. VINCRISTINE SULFATE [Suspect]
     Dosage: 16 MG
  4. CYCLOPHOSPHAMIDE [Suspect]
     Dosage: 1760 MG
  5. RITUXIMAB (MOAB C2B8 ANTI CD20, CHIMERIC) [Suspect]
     Dosage: 730 MG
  6. DOXORUBICIN HYDROCHLORIDE [Suspect]
     Dosage: 92 MG
  7. GEODON [Concomitant]

REACTIONS (7)
  - NAUSEA [None]
  - VOMITING [None]
  - BODY TEMPERATURE INCREASED [None]
  - CHILLS [None]
  - DIARRHOEA [None]
  - ABDOMINAL PAIN [None]
  - BACILLUS TEST POSITIVE [None]
